FAERS Safety Report 11779418 (Version 3)
Quarter: 2016Q1

REPORT INFORMATION
  Report Type: Spontaneous
  Country: US (occurrence: US)
  Receive Date: 20151125
  Receipt Date: 20160204
  Transmission Date: 20160525
  Serious: Yes (Other)
  Sender: FDA-Public Use
  Company Number: US-REGENERON PHARMACEUTICALS, INC.-2015-14172

PATIENT

DRUGS (4)
  1. LOSARTAN + HIDROCLOROTIAZIDA       /01625701/ [Concomitant]
     Dosage: 12.5 MG MILLIGRAM(S), QD
  2. WARFARIN [Concomitant]
     Active Substance: WARFARIN
     Dosage: 8 MG MILLIGRAM(S), QD
  3. PRESERVISION AREDS [Concomitant]
     Active Substance: MINERALS\VITAMINS
     Dosage: UNK, BID
  4. EYLEA [Suspect]
     Active Substance: AFLIBERCEPT
     Indication: NEOVASCULAR AGE-RELATED MACULAR DEGENERATION
     Dosage: UNK

REACTIONS (1)
  - Eye haemorrhage [Unknown]

NARRATIVE: CASE EVENT DATE: 20151120
